FAERS Safety Report 5248012-2 (Version None)
Quarter: 2007Q1

REPORT INFORMATION
  Report Type: 
  Country: None (occurrence: None)
  Receive Date: 20070222
  Receipt Date: 20070211
  Transmission Date: 20070707
  Serious: Yes (Disabling)
  Sender: FDA-Public Use
  Company Number: 2007-153810-NL

PATIENT
  Age: 20 Year
  Sex: Male

DRUGS (4)
  1. ROCURONIUM BROMIDE [Suspect]
     Indication: MUSCLE RELAXANT THERAPY
     Dosage: NI INTRAVENOUS (NOS)
     Route: 042
     Dates: start: 20061115, end: 20061115
  2. CLINDAMYCIN [Concomitant]
  3. PROPOFOL [Concomitant]
  4. SUFENTANIL CITRATE [Concomitant]

REACTIONS (10)
  - CELL-MEDIATED CYTOTOXICITY [None]
  - COMPARTMENT SYNDROME [None]
  - EXTRAVASATION [None]
  - INFUSION SITE NERVE DAMAGE [None]
  - MEDIAN NERVE INJURY [None]
  - OEDEMA PERIPHERAL [None]
  - RADIAL NERVE INJURY [None]
  - SKIN DISCOLOURATION [None]
  - ULNAR NERVE INJURY [None]
  - VASOSPASM [None]
